FAERS Safety Report 21039846 (Version 1)
Quarter: 2022Q3

REPORT INFORMATION
  Report Type: Spontaneous
  Country: CN (occurrence: CN)
  Receive Date: 20220704
  Receipt Date: 20220704
  Transmission Date: 20221026
  Serious: Yes (Hospitalization)
  Sender: FDA-Public Use
  Company Number: CN-PFIZER INC-PV202200013464

PATIENT
  Age: 88 Year
  Sex: Female

DRUGS (2)
  1. TYGACIL [Suspect]
     Active Substance: TIGECYCLINE
     Indication: Septic shock
     Dosage: 100 MG, 2X/DAY
     Route: 041
     Dates: start: 20220604, end: 20220607
  2. CEFOPERAZONE SODIUM\SULBACTAM SODIUM [Concomitant]
     Active Substance: CEFOPERAZONE SODIUM\SULBACTAM SODIUM
     Indication: Septic shock
     Dosage: 3 G, 2X/DAY
     Route: 041
     Dates: start: 20220606, end: 20220607

REACTIONS (3)
  - Amylase increased [Recovering/Resolving]
  - Condition aggravated [Unknown]
  - Off label use [Unknown]

NARRATIVE: CASE EVENT DATE: 20220604
